FAERS Safety Report 5083773-7 (Version None)
Quarter: 2006Q3

REPORT INFORMATION
  Report Type: 
  Country: None (occurrence: None)
  Receive Date: 20060818
  Receipt Date: 20060606
  Transmission Date: 20061208
  Serious: Yes (Hospitalization, Other)
  Sender: FDA-Public Use
  Company Number: DE-ABBOTT-06P-062-0335477-00

PATIENT

DRUGS (2)
  1. KALETRA [Suspect]
     Indication: HIV INFECTION
     Route: 048
  2. TRUVADA [Concomitant]
     Indication: HIV INFECTION

REACTIONS (4)
  - BRAIN ABSCESS [None]
  - CEREBRAL HAEMORRHAGE [None]
  - ENDOCARDITIS BACTERIAL [None]
  - SEPSIS [None]
